FAERS Safety Report 5518074-3 (Version None)
Quarter: 2007Q4

REPORT INFORMATION
  Report Type: 
  Country: None (occurrence: None)
  Receive Date: 20071115
  Receipt Date: 20071101
  Transmission Date: 20080405
  Serious: Yes (Other)
  Sender: FDA-Public Use
  Company Number: US-ELI_LILLY_AND_COMPANY-US200708000538

PATIENT
  Sex: Female
  Weight: 48.526 kg

DRUGS (7)
  1. FORTEO [Suspect]
     Indication: OSTEOPOROSIS
     Dosage: 20 UG, DAILY (1/D)
     Dates: start: 20070301, end: 20070101
  2. FORTEO [Suspect]
     Dosage: UNK, UNK
     Dates: start: 20070702, end: 20070719
  3. HYZAAR [Concomitant]
     Indication: HYPERTENSION
  4. PLAVIX [Concomitant]
     Indication: PERIPHERAL VASCULAR DISORDER
  5. LOVASTATIN [Concomitant]
     Indication: HYPERLIPIDAEMIA
  6. NORVASC [Concomitant]
     Indication: HYPERTENSION
  7. SYNTHROID [Concomitant]
     Indication: HYPOTHYROIDISM

REACTIONS (3)
  - ARTHRALGIA [None]
  - METABOLIC DISORDER [None]
  - PARALYSIS [None]
